FAERS Safety Report 9784504 (Version 1)
Quarter: 2013Q4

REPORT INFORMATION
  Report Type: Spontaneous
  Country: GB (occurrence: GB)
  Receive Date: 20131226
  Receipt Date: 20131226
  Transmission Date: 20140711
  Serious: Yes (Death)
  Sender: FDA-Public Use
  Company Number: GB-UCBSA-106514

PATIENT
  Age: 63 Year
  Sex: Male
  Weight: 98 kg

DRUGS (5)
  1. VIMPAT [Suspect]
     Indication: EPILEPSY
     Dosage: DOSE STRENGTH: 200 MG
     Route: 048
  2. LAMICTAL [Suspect]
     Indication: EPILEPSY
     Dosage: STRENGTH: 50 MG
     Route: 048
  3. RIVOTRIL [Suspect]
     Indication: EPILEPSY
     Route: 048
  4. MIDAZOLAM [Concomitant]
     Dosage: UNKNOWN
  5. RUFINAMIDE [Concomitant]
     Dosage: UNKNOWN

REACTIONS (1)
  - Completed suicide [Fatal]
